FAERS Safety Report 12871715 (Version 3)
Quarter: 2017Q4

REPORT INFORMATION
  Report Type: Report from Study
  Country: US (occurrence: US)
  Receive Date: 20161021
  Receipt Date: 20171025
  Transmission Date: 20180320
  Serious: Yes (Hospitalization, Other)
  Sender: FDA-Public Use
  Company Number: US-PURDUE-USA-2016-0131838

PATIENT
  Age: 66 Year
  Sex: Female

DRUGS (5)
  1. OXYCODONE HYDROCHLORIDE. [Suspect]
     Active Substance: OXYCODONE HYDROCHLORIDE
     Indication: PAIN
     Dosage: UNK (DOSE FROM CUT TABLET)
     Route: 048
     Dates: start: 20161031, end: 20161107
  2. OXYCODONE HYDROCHLORIDE. [Suspect]
     Active Substance: OXYCODONE HYDROCHLORIDE
     Dosage: 40 MG, Q8H
     Route: 048
     Dates: start: 20160922, end: 20161031
  3. ENDOCET [Concomitant]
     Active Substance: ACETAMINOPHEN\OXYCODONE HYDROCHLORIDE
     Indication: PRODUCT USED FOR UNKNOWN INDICATION
     Route: 048
  4. OXYCODONE HYDROCHLORIDE. [Suspect]
     Active Substance: OXYCODONE HYDROCHLORIDE
     Dosage: UNK
     Route: 048
     Dates: start: 201105
  5. OXYCODONE HYDROCHLORIDE. [Suspect]
     Active Substance: OXYCODONE HYDROCHLORIDE
     Indication: RHEUMATOID ARTHRITIS
     Dosage: 40 MG, Q8H
     Route: 048

REACTIONS (14)
  - Hypersensitivity [Unknown]
  - Cystitis [Unknown]
  - Tooth fracture [Unknown]
  - Pain [Unknown]
  - Off label use [Unknown]
  - Hypothyroidism [Unknown]
  - Wrong technique in product usage process [Recovered/Resolved]
  - Dyspnoea [Unknown]
  - Weight decreased [Unknown]
  - Intentional product use issue [Recovered/Resolved]
  - Chronic obstructive pulmonary disease [Unknown]
  - Tremor [Unknown]
  - Fall [Unknown]
  - Dizziness [Unknown]

NARRATIVE: CASE EVENT DATE: 201601
